FAERS Safety Report 5913760-5 (Version None)
Quarter: 2008Q4

REPORT INFORMATION
  Report Type: 
  Country: None (occurrence: None)
  Receive Date: 20081007
  Receipt Date: 20080925
  Transmission Date: 20090506
  Serious: Yes (Life-Threatening, Hospitalization)
  Sender: FDA-Public Use
  Company Number: 100#01#2008-04869

PATIENT
  Age: 71 Year
  Sex: Male

DRUGS (5)
  1. AZITHROMYCIN [Suspect]
     Indication: PNEUMONIA
     Dosage: 500 MG, INTRAVENOUS (NOT OTHERWISE SPECIFIED)
     Route: 042
     Dates: start: 20080912, end: 20080912
  2. SULFASALAZIN (SULFASALAZIN) [Concomitant]
  3. VIVACOR (CARVEDILOL) [Concomitant]
  4. ACCUPRO (QUINALAPRIL) [Concomitant]
  5. ACETYLSALICYLIC ACID SRT [Concomitant]

REACTIONS (2)
  - ANAPHYLACTIC SHOCK [None]
  - ANXIETY [None]
